FAERS Safety Report 16624855 (Version 1)
Quarter: 2019Q3

REPORT INFORMATION
  Report Type: Spontaneous
  Country: US (occurrence: US)
  Receive Date: 20190611
  Receipt Date: 20190611
  Transmission Date: 20191004
  Serious: No
  Sender: FDA-Public Use
  Company Number: None

PATIENT
  Age: 54 Year
  Sex: Female

DRUGS (1)
  1. ENBREL [Suspect]
     Active Substance: ETANERCEPT
     Dates: start: 201812, end: 201903

REACTIONS (2)
  - Disease recurrence [None]
  - Sinusitis [None]

NARRATIVE: CASE EVENT DATE: 20190513
